FAERS Safety Report 4882955-4 (Version None)
Quarter: 2006Q1

REPORT INFORMATION
  Report Type: 
  Country: None (occurrence: None)
  Receive Date: 20060112
  Receipt Date: 20051220
  Transmission Date: 20060701
  Serious: Yes (Life-Threatening)
  Sender: FDA-Public Use
  Company Number: 219683

PATIENT
  Age: 30 Year
  Sex: Male

DRUGS (2)
  1. AVASTIN [Suspect]
     Indication: COLON CANCER METASTATIC
     Dosage: 25 MG/ML, INTRAVENOUS
     Route: 042
     Dates: start: 20050615, end: 20051005
  2. CHEMOTHERAPY NO (ANTINEOPLASTIC AGENT NOS) [Concomitant]

REACTIONS (3)
  - CHOLANGITIS [None]
  - PERITONITIS [None]
  - SMALL INTESTINAL PERFORATION [None]
